FAERS Safety Report 15103345 (Version 1)
Quarter: 2018Q2

REPORT INFORMATION
  Report Type: Spontaneous
  Country: US (occurrence: US)
  Receive Date: 20180611
  Receipt Date: 20180611
  Transmission Date: 20180711
  Serious: Yes (Other)
  Sender: FDA-Public Use
  Company Number: None

PATIENT
  Age: 39 Year
  Sex: Female

DRUGS (5)
  1. MULTIVITAMIN [Concomitant]
     Active Substance: VITAMINS
  2. MONO-LYNYAH TABLETS [Concomitant]
  3. OXYBUTYNIN ER 5MG TABLET [Concomitant]
     Dates: start: 20171019
  4. BACLOFEN 10MG [Concomitant]
     Active Substance: BACLOFEN
     Dates: start: 20180106
  5. LISINOPRIL. [Suspect]
     Active Substance: LISINOPRIL
     Indication: HYPERTENSION
     Route: 048
     Dates: start: 20171019, end: 20180605

REACTIONS (1)
  - Angioedema [None]

NARRATIVE: CASE EVENT DATE: 20180605
